FAERS Safety Report 6597769-7 (Version None)
Quarter: 2010Q1

REPORT INFORMATION
  Report Type: 
  Country: None (occurrence: None)
  Receive Date: 20100223
  Receipt Date: 20100212
  Transmission Date: 20100710
  Serious: Yes (Death, Hospitalization)
  Sender: FDA-Public Use
  Company Number: BR-MERCK-1002BRA00047

PATIENT
  Age: 52 Year
  Sex: Male
  Weight: 110 kg

DRUGS (1)
  1. JANUVIA [Suspect]
     Indication: DIABETES MELLITUS
     Route: 065
     Dates: start: 20080101

REACTIONS (1)
  - SALIVARY GLAND CANCER [None]
